FAERS Safety Report 9443494 (Version 1)
Quarter: 2013Q3

REPORT INFORMATION
  Report Type: Spontaneous
  Country: US (occurrence: US)
  Receive Date: 20130806
  Receipt Date: 20130806
  Transmission Date: 20140515
  Serious: Yes (Disabling, Other)
  Sender: FDA-Public Use
  Company Number: CHPA2013US012312

PATIENT
  Age: 75 Year
  Sex: Female

DRUGS (2)
  1. PREVACID 24HR 15MG [Suspect]
     Indication: HIATUS HERNIA
     Dosage: 15 MG, QD
     Route: 048
     Dates: start: 20130711, end: 20130725
  2. PREVACID 24HR 15MG [Suspect]
     Dosage: 15 MG, QD
     Route: 048

REACTIONS (5)
  - Activities of daily living impaired [Not Recovered/Not Resolved]
  - Diarrhoea [Not Recovered/Not Resolved]
  - Disease recurrence [Unknown]
  - Off label use [Unknown]
  - Inappropriate schedule of drug administration [Unknown]
